FAERS Safety Report 6755675-9 (Version None)
Quarter: 2010Q2

REPORT INFORMATION
  Report Type: 
  Country: None (occurrence: None)
  Receive Date: 20100604
  Receipt Date: 20100528
  Transmission Date: 20101027
  Serious: Yes (Other)
  Sender: FDA-Public Use
  Company Number: US-TEVA-236338USA

PATIENT
  Age: 67 Year
  Sex: Male
  Weight: 56.296 kg

DRUGS (6)
  1. AZILECT [Suspect]
     Route: 048
     Dates: start: 20100526, end: 20100501
  2. INSULIN [Suspect]
     Indication: DIABETES MELLITUS
  3. VALSARTAN [Concomitant]
  4. PLAVACO [Concomitant]
     Indication: BLOOD CHOLESTEROL INCREASED
  5. LISINOPRIL [Concomitant]
     Indication: HYPERTENSION
  6. AMLODIPINE [Concomitant]
     Indication: HYPERTENSION

REACTIONS (1)
  - BLOOD GLUCOSE DECREASED [None]
